FAERS Safety Report 10634884 (Version 1)
Quarter: 2014Q4

REPORT INFORMATION
  Report Type: Spontaneous
  Country: US (occurrence: US)
  Receive Date: 20141205
  Receipt Date: 20141205
  Transmission Date: 20150529
  Serious: Yes (Congenital Anomaly)
  Sender: FDA-Public Use
  Company Number: US-FRI-1000072840

PATIENT
  Age: 0 Day

DRUGS (5)
  1. SAPHRIS [Suspect]
     Active Substance: ASENAPINE MALEATE
     Indication: BIPOLAR DISORDER
     Dosage: 10 MG
     Route: 060
     Dates: start: 20131031, end: 20131113
  2. SAPHRIS [Suspect]
     Active Substance: ASENAPINE MALEATE
     Dosage: 20 MG
     Route: 060
     Dates: start: 20131114
  3. XANAX [Concomitant]
     Active Substance: ALPRAZOLAM
     Dosage: 1 MG
  4. FOLIC ACID. [Concomitant]
     Active Substance: FOLIC ACID
     Dosage: 1 MG
  5. LAMOTRIGINE. [Concomitant]
     Active Substance: LAMOTRIGINE
     Indication: BIPOLAR DISORDER
     Dosage: 400 MG

REACTIONS (2)
  - Congenital tongue anomaly [Unknown]
  - Deafness congenital [Not Recovered/Not Resolved]

NARRATIVE: CASE EVENT DATE: 20140831
